FAERS Safety Report 24222110 (Version 2)
Quarter: 2024Q4

REPORT INFORMATION
  Report Type: Spontaneous
  Country: US (occurrence: US)
  Receive Date: 20240819
  Receipt Date: 20241022
  Transmission Date: 20250115
  Serious: No
  Sender: ALIMERA
  Company Number: ALIM2400273

PATIENT
  Age: 63 Year

DRUGS (1)
  1. ILUVIEN [Suspect]
     Active Substance: FLUOCINOLONE ACETONIDE
     Indication: Diabetic retinal oedema
     Dosage: 0.25 MICROGRAM, QD - RIGHT EYE
     Route: 031
     Dates: start: 20240614, end: 20240614

REACTIONS (4)
  - Medical device removal [Recovered/Resolved]
  - Product administration error [Recovered/Resolved]
  - Circumstance or information capable of leading to medication error [Recovered/Resolved]
  - Device malfunction [Recovered/Resolved]

NARRATIVE: CASE EVENT DATE: 20240614
